FAERS Safety Report 17016069 (Version 1)
Quarter: 2019Q4

REPORT INFORMATION
  Report Type: Spontaneous
  Country: CN (occurrence: CN)
  Receive Date: 20191111
  Receipt Date: 20191111
  Transmission Date: 20200122
  Serious: Yes (Other)
  Sender: FDA-Public Use
  Company Number: CN-PFIZER INC-2019482979

PATIENT
  Age: 52 Year
  Sex: Male
  Weight: 65 kg

DRUGS (12)
  1. ASPIRIN (E.C.) [Concomitant]
     Active Substance: ASPIRIN
     Indication: CEREBRAL INFARCTION
     Dosage: 2 DF, 1X/DAY
     Route: 048
     Dates: start: 20190928, end: 20191007
  2. RUI BO TE [Suspect]
     Active Substance: RABEPRAZOLE SODIUM
     Indication: CEREBRAL INFARCTION
     Dosage: 1 DF, 1X/DAY
     Route: 048
     Dates: start: 20190928, end: 20191007
  3. ASPIRIN (E.C.) [Concomitant]
     Active Substance: ASPIRIN
     Indication: ESSENTIAL HYPERTENSION
  4. RUI BO TE [Suspect]
     Active Substance: RABEPRAZOLE SODIUM
     Indication: CAROTID ARTERIOSCLEROSIS
  5. RUI BO TE [Suspect]
     Active Substance: RABEPRAZOLE SODIUM
     Indication: ESSENTIAL HYPERTENSION
  6. ASPIRIN (E.C.) [Concomitant]
     Active Substance: ASPIRIN
     Indication: HEMIPLEGIA
  7. LIPITOR [Suspect]
     Active Substance: ATORVASTATIN CALCIUM
     Indication: HEMIPLEGIA
  8. ASPIRIN (E.C.) [Concomitant]
     Active Substance: ASPIRIN
     Indication: CAROTID ARTERIOSCLEROSIS
  9. LIPITOR [Suspect]
     Active Substance: ATORVASTATIN CALCIUM
     Indication: CEREBRAL INFARCTION
     Dosage: 1 DF, 1X/DAY
     Route: 048
     Dates: start: 20190928, end: 20191007
  10. LIPITOR [Suspect]
     Active Substance: ATORVASTATIN CALCIUM
     Indication: ESSENTIAL HYPERTENSION
  11. RUI BO TE [Suspect]
     Active Substance: RABEPRAZOLE SODIUM
     Indication: HEMIPLEGIA
  12. LIPITOR [Suspect]
     Active Substance: ATORVASTATIN CALCIUM
     Indication: CAROTID ARTERIOSCLEROSIS

REACTIONS (2)
  - Rash erythematous [Recovering/Resolving]
  - Pruritus [Recovering/Resolving]

NARRATIVE: CASE EVENT DATE: 20191006
